FAERS Safety Report 15334170 (Version 1)
Quarter: 2018Q3

REPORT INFORMATION
  Report Type: Spontaneous
  Country: US (occurrence: US)
  Receive Date: 20180827
  Receipt Date: 20180827
  Transmission Date: 20181010
  Serious: Yes (Other)
  Sender: FDA-Public Use
  Company Number: None

PATIENT
  Age: 66 Year
  Sex: Male
  Weight: 77.56 kg

DRUGS (1)
  1. CUBICIN [Suspect]
     Active Substance: DAPTOMYCIN
     Indication: EXTRADURAL ABSCESS
     Route: 042
     Dates: start: 20180720, end: 20180817

REACTIONS (3)
  - Musculoskeletal discomfort [None]
  - Blood creatine phosphokinase increased [None]
  - Pain [None]

NARRATIVE: CASE EVENT DATE: 20180817
